FAERS Safety Report 18013667 (Version 1)
Quarter: 2020Q3

REPORT INFORMATION
  Report Type: Spontaneous
  Country: US (occurrence: US)
  Receive Date: 20200711
  Receipt Date: 20200711
  Transmission Date: 20201103
  Serious: Yes (Hospitalization)
  Sender: FDA-Public Use
  Company Number: None

PATIENT
  Age: 70 Year
  Sex: Female
  Weight: 73.9 kg

DRUGS (1)
  1. MK?3475 (PEMBROLIZUMAB) [Suspect]
     Active Substance: PEMBROLIZUMAB
     Dates: end: 20200521

REACTIONS (4)
  - Hypotension [None]
  - Hyperglycaemia [None]
  - Anaemia [None]
  - Post procedural haemorrhage [None]

NARRATIVE: CASE EVENT DATE: 20190528
